FAERS Safety Report 16683409 (Version 1)
Quarter: 2019Q3

REPORT INFORMATION
  Report Type: Report from Study
  Country: ES (occurrence: ES)
  Receive Date: 20190808
  Receipt Date: 20190808
  Transmission Date: 20191004
  Serious: Yes (Death, Other)
  Sender: FDA-Public Use
  Company Number: ES-PFIZER INC-2014210298

PATIENT
  Age: 30 Year
  Sex: Male
  Weight: 66 kg

DRUGS (16)
  1. ALOXI [Concomitant]
     Active Substance: PALONOSETRON HYDROCHLORIDE
     Indication: ANTIEMETIC SUPPORTIVE CARE
     Dosage: 250 UG, EVERY 48 HOURS
     Route: 042
     Dates: start: 20140707, end: 20140709
  2. DEXAMETHASONE. [Concomitant]
     Active Substance: DEXAMETHASONE
     Indication: PROPHYLAXIS
     Dosage: 4 MG, 1X/DAY
     Route: 048
     Dates: start: 20140707, end: 20140720
  3. TOBRAMYCIN EYE DROPS [Concomitant]
     Indication: EYE INFECTION BACTERIAL
     Dosage: 1 DROP, 3X/DAY
     Route: 047
     Dates: start: 20140712, end: 20140715
  4. SEPTRIN FORTE [Concomitant]
     Active Substance: SULFAMETHOXAZOLE\TRIMETHOPRIM
     Indication: ANTIFUNGAL PROPHYLAXIS
     Dosage: 160/800 UG 3X/WEEK
     Route: 048
     Dates: start: 20140707
  5. NOXAFIL [Concomitant]
     Active Substance: POSACONAZOLE
     Indication: ANTIFUNGAL PROPHYLAXIS
     Dosage: 200 MG, 3X/DAY
     Route: 048
     Dates: start: 20140707, end: 20140723
  6. RANITIDINE. [Concomitant]
     Active Substance: RANITIDINE
     Indication: PROPHYLAXIS AGAINST GASTROINTESTINAL ULCER
     Dosage: 150 MG, 2X/DAY
     Route: 048
     Dates: start: 20140707
  7. CYTARABINE. [Suspect]
     Active Substance: CYTARABINE
     Indication: ACUTE LYMPHOCYTIC LEUKAEMIA
     Dosage: 3.4 G, CYCLIC (DAYS 1-6, 4 WEEK CYCLE)
     Route: 042
     Dates: start: 20140707, end: 20140712
  8. FLUDARABINE [Suspect]
     Active Substance: FLUDARABINE PHOSPHATE
     Indication: ACUTE LYMPHOCYTIC LEUKAEMIA
     Dosage: 50 MG, CYCLIC (DAYS 2-6, 4 WEEK CYCLE)
     Route: 042
     Dates: start: 20140708, end: 20140712
  9. NEUPOGEN [Suspect]
     Active Substance: FILGRASTIM
     Dosage: 300 UG, CYCLIC (DAYS 1-3 CYCLIC)
     Route: 058
     Dates: start: 20140707, end: 20140709
  10. PRIMPERAN [Concomitant]
     Active Substance: METOCLOPRAMIDE HYDROCHLORIDE
     Indication: PROPHYLAXIS OF NAUSEA AND VOMITING
     Dosage: 10 MG, 3X/DAY
     Route: 042
     Dates: start: 20140707, end: 20140717
  11. ACETAMINOPHEN. [Concomitant]
     Active Substance: ACETAMINOPHEN
     Indication: PYREXIA
     Dosage: 1 G, 3X/DAY
     Route: 042
     Dates: start: 20140707
  12. MAXIDEX [Concomitant]
     Active Substance: DEXAMETHASONE
     Indication: PROPHYLAXIS
     Dosage: 0.1%, 2 DROPS, 3X/DAY
     Route: 047
     Dates: start: 20140707, end: 20140716
  13. ZOVIRAX [Concomitant]
     Active Substance: ACYCLOVIR
     Indication: ANTIVIRAL PROPHYLAXIS
     Dosage: 400 MG, 2X/DAY
     Route: 048
     Dates: start: 20140707
  14. CIPROFLOXACIN. [Concomitant]
     Active Substance: CIPROFLOXACIN
     Indication: ANTIBIOTIC PROPHYLAXIS
     Dosage: 500 MG, 1X/DAY
     Route: 048
     Dates: start: 20140707, end: 20140713
  15. BENADON ^PIRAMAL^ [Concomitant]
     Indication: PROPHYLAXIS
     Dosage: 300 MG, 1X/DAY
     Route: 042
     Dates: start: 20140707, end: 20140712
  16. NEUPOGEN [Suspect]
     Active Substance: FILGRASTIM
     Dosage: 300 UG, 1X/DAY
     Dates: start: 20140721, end: 20140802

REACTIONS (3)
  - Febrile neutropenia [Recovered/Resolved]
  - Pseudomonal bacteraemia [Fatal]
  - Multiple organ dysfunction syndrome [Fatal]

NARRATIVE: CASE EVENT DATE: 20140713
